FAERS Safety Report 15231678 (Version 5)
Quarter: 2021Q3

REPORT INFORMATION
  Report Type: Spontaneous
  Country: US (occurrence: US)
  Receive Date: 20180802
  Receipt Date: 20210720
  Transmission Date: 20211014
  Serious: Yes (Hospitalization, Other)
  Sender: FDA-Public Use
  Company Number: US-GLAXOSMITHKLINE-US2018GSK138510

PATIENT
  Age: 68 Year
  Sex: Female

DRUGS (5)
  1. PREVACID 24 HR [Suspect]
     Active Substance: LANSOPRAZOLE
     Indication: PRODUCT USED FOR UNKNOWN INDICATION
     Dosage: 15 MG, QD (WHEN REQUIRED)
     Route: 048
  2. NEXIUM [Suspect]
     Active Substance: ESOMEPRAZOLE MAGNESIUM
     Indication: PRODUCT USED FOR UNKNOWN INDICATION
     Dosage: 40 MG
     Route: 065
     Dates: start: 20100302, end: 20100808
  3. NEXIUM [Suspect]
     Active Substance: ESOMEPRAZOLE MAGNESIUM
     Indication: PRODUCT USED FOR UNKNOWN INDICATION
     Route: 065
  4. PREVACID 24 HR [Suspect]
     Active Substance: LANSOPRAZOLE
     Indication: GASTROOESOPHAGEAL REFLUX DISEASE
     Dosage: UNK
     Route: 048
     Dates: start: 2014, end: 2016
  5. PANTOPRAZOLE [Suspect]
     Active Substance: PANTOPRAZOLE
     Indication: GASTROOESOPHAGEAL REFLUX DISEASE
     Dosage: 40 MG, QD
     Route: 048

REACTIONS (11)
  - Chronic kidney disease [Unknown]
  - Ureterolysis procedure [Unknown]
  - Nephrostomy [Unknown]
  - Ureteric stenosis [Unknown]
  - Ureteric obstruction [Unknown]
  - Hydronephrosis [Unknown]
  - Haematuria [Unknown]
  - Hydroureter [Unknown]
  - Urethral stent insertion [Unknown]
  - Renal injury [Unknown]
  - Dysuria [Unknown]

NARRATIVE: CASE EVENT DATE: 20141028
